FAERS Safety Report 6946911-4 (Version None)
Quarter: 2010Q3

REPORT INFORMATION
  Report Type: 
  Country: None (occurrence: None)
  Receive Date: 20100825
  Receipt Date: 20100811
  Transmission Date: 20110219
  Serious: Yes (Hospitalization)
  Sender: FDA-Public Use
  Company Number: TOR 2010-0073

PATIENT
  Age: 60 Year
  Sex: Female

DRUGS (2)
  1. FARESTON [Suspect]
     Indication: BREAST CANCER STAGE IV
     Dosage: (120 MG) ORAL
     Route: 048
     Dates: start: 20090105, end: 20090611
  2. TAXOTERE [Suspect]
     Indication: BREAST CANCER STAGE IV

REACTIONS (4)
  - BLOOD LACTATE DEHYDROGENASE DECREASED [None]
  - BLOOD LACTATE DEHYDROGENASE INCREASED [None]
  - GAMMA-GLUTAMYLTRANSFERASE INCREASED [None]
  - WHITE BLOOD CELL COUNT DECREASED [None]
